FAERS Safety Report 26120438 (Version 1)
Quarter: 2025Q4

REPORT INFORMATION
  Report Type: Spontaneous
  Country: US (occurrence: US)
  Receive Date: 20251204
  Receipt Date: 20251204
  Transmission Date: 20260117
  Serious: No
  Sender: ACCORD
  Company Number: US-Accord-482401

PATIENT
  Age: 75 Year
  Sex: Female
  Weight: 48.99 kg

DRUGS (1)
  1. LEVOTHYROXINE SODIUM [Suspect]
     Active Substance: LEVOTHYROXINE SODIUM
     Indication: Hypothyroidism
     Dosage: STRENGTH: 50MCG?FREQUENCY: ONCE DAILY IN THE MORNING WITH A GLASS OF WATER
     Route: 048
     Dates: start: 20240823, end: 202503

REACTIONS (29)
  - Headache [Recovered/Resolved]
  - Alopecia [Recovered/Resolved]
  - Dry mouth [Recovered/Resolved]
  - Dyspnoea [Recovered/Resolved]
  - Dysgeusia [Recovered/Resolved]
  - Tongue coated [Recovered/Resolved]
  - Tinnitus [Recovered/Resolved]
  - Epistaxis [Recovered/Resolved]
  - Gingival bleeding [Recovered/Resolved]
  - Swollen tongue [Recovered/Resolved]
  - Abdominal distension [Recovered/Resolved]
  - Skin discolouration [Recovered/Resolved]
  - Product solubility abnormal [Unknown]
  - Muscle spasms [Recovered/Resolved]
  - Urine odour abnormal [Recovered/Resolved]
  - Bowel movement irregularity [Recovered/Resolved]
  - Illness [Recovered/Resolved]
  - Fatigue [Recovered/Resolved]
  - Pain [Recovered/Resolved]
  - Mouth swelling [Recovering/Resolving]
  - Aphthous ulcer [Recovering/Resolving]
  - Dyspepsia [Recovering/Resolving]
  - Breast pain [Recovering/Resolving]
  - Breast mass [Recovering/Resolving]
  - Renal pain [Recovering/Resolving]
  - Rhinorrhoea [Recovering/Resolving]
  - Toothache [Recovering/Resolving]
  - Abdominal mass [Recovering/Resolving]
  - Product substitution issue [Unknown]

NARRATIVE: CASE EVENT DATE: 20240101
